FAERS Safety Report 11961702 (Version 2)
Quarter: 2016Q1

REPORT INFORMATION
  Report Type: Report from Study
  Country: US (occurrence: US)
  Receive Date: 20160126
  Receipt Date: 20160202
  Transmission Date: 20160526
  Serious: No
  Sender: FDA-Public Use
  Company Number: US-ABBVIE-15K-163-1359210-00

PATIENT
  Sex: Female
  Weight: 72.64 kg

DRUGS (3)
  1. HUMIRA [Suspect]
     Active Substance: ADALIMUMAB
     Indication: BEHCET^S SYNDROME
     Dosage: LOADING DOSE
     Route: 058
     Dates: start: 20140624, end: 20140624
  2. HUMIRA [Suspect]
     Active Substance: ADALIMUMAB
     Route: 058
     Dates: start: 201407, end: 201407
  3. HUMIRA [Suspect]
     Active Substance: ADALIMUMAB
     Route: 058
     Dates: start: 201407, end: 20150227

REACTIONS (10)
  - Abdominal pain [Not Recovered/Not Resolved]
  - Localised infection [Recovered/Resolved]
  - Vasculitis [Recovered/Resolved]
  - Diarrhoea [Not Recovered/Not Resolved]
  - Skin discolouration [Recovered/Resolved]
  - Crohn^s disease [Not Recovered/Not Resolved]
  - Localised infection [Recovered/Resolved]
  - Testicular pain [Not Recovered/Not Resolved]
  - Constipation [Recovered/Resolved]
  - Vasculitis [Not Recovered/Not Resolved]

NARRATIVE: CASE EVENT DATE: 2014
